FAERS Safety Report 7512802-3 (Version None)
Quarter: 2011Q2

REPORT INFORMATION
  Report Type: 
  Country: None (occurrence: None)
  Receive Date: 20110531
  Receipt Date: 20110523
  Transmission Date: 20111010
  Serious: Yes (Other)
  Sender: FDA-Public Use
  Company Number: B0722007A

PATIENT

DRUGS (2)
  1. VALACYCLOVIR HCL [Concomitant]
     Route: 048
  2. ZOVIRAX [Suspect]
     Indication: HERPES ZOSTER
     Route: 031

REACTIONS (5)
  - CORNEAL OEDEMA [None]
  - EYE INFLAMMATION [None]
  - VISUAL ACUITY REDUCED [None]
  - ULCERATIVE KERATITIS [None]
  - NERVOUS SYSTEM DISORDER [None]
